FAERS Safety Report 4802976-7 (Version None)
Quarter: 2005Q4

REPORT INFORMATION
  Report Type: 
  Country: None (occurrence: None)
  Receive Date: 20051019
  Receipt Date: 20050923
  Transmission Date: 20060501
  Serious: Yes (Hospitalization, Other)
  Sender: FDA-Public Use
  Company Number: PHNU2005DE03267

PATIENT
  Age: 78 Year
  Sex: Female

DRUGS (8)
  1. PROVAS COMP [Suspect]
     Indication: HYPERTENSION
     Dosage: 1 DF, QD
     Route: 048
     Dates: start: 20031201, end: 20050921
  2. MOXONIDINE [Concomitant]
     Dosage: 0.3 MG/D
     Route: 048
     Dates: start: 20030217
  3. METOPROLOL TARTRATE [Concomitant]
     Route: 048
  4. XIPAMIDE [Concomitant]
     Dosage: UNK, UNK
     Route: 048
     Dates: end: 20050901
  5. METOPROLOL SUCCINATE [Concomitant]
     Dosage: 95 MG, QD
     Route: 048
     Dates: start: 20050901
  6. PANTOPRAZOLE SODIUM [Concomitant]
     Dosage: 40 MG, QD
     Route: 048
     Dates: start: 20050901
  7. RAMIPRIL [Concomitant]
     Dosage: 2.5 MG, BID
     Route: 048
  8. SULFAMETHOXAZOLE + TRIMETHOPRIM [Concomitant]
     Indication: URINARY TRACT INFECTION
     Dates: start: 20050901, end: 20050901

REACTIONS (15)
  - ALANINE AMINOTRANSFERASE INCREASED [None]
  - CHOLECYSTECTOMY [None]
  - CORONARY ARTERY DISEASE [None]
  - ELECTROCARDIOGRAM ST SEGMENT DEPRESSION [None]
  - GAMMA-GLUTAMYLTRANSFERASE INCREASED [None]
  - HAEMATOMA [None]
  - HEPATIC ENZYME INCREASED [None]
  - HYPOKALAEMIA [None]
  - LIPASE INCREASED [None]
  - MYOCARDIAL ISCHAEMIA [None]
  - PETECHIAE [None]
  - RENAL ATROPHY [None]
  - RENAL FAILURE [None]
  - THROMBOCYTOPENIA [None]
  - URINARY TRACT INFECTION BACTERIAL [None]
